FAERS Safety Report 4417637-6 (Version None)
Quarter: 2004Q3

REPORT INFORMATION
  Report Type: 
  Country: None (occurrence: None)
  Receive Date: 20040803
  Receipt Date: 20040726
  Transmission Date: 20050211
  Serious: Yes (Death)
  Sender: FDA-Public Use
  Company Number: 04H-083-0268177-00

PATIENT

DRUGS (3)
  1. LEUCOVORIN CALCIUM [Suspect]
     Indication: CHEMOTHERAPY
     Dosage: 100 MG/M2, DAYS 1-5, INTRAVENOUS
     Route: 042
  2. FLUOROURACIL [Suspect]
     Indication: CHEMOTHERAPY
     Dosage: 400 MG/M2, DAYS 1-5, INTRAVENOUS
     Route: 042
  3. GEMCITABINE [Suspect]
     Indication: CHEMOTHERAPY
     Dosage: 1 G/M2, DAY 1, 8, + 16, INTRAVENOUS
     Route: 042

REACTIONS (1)
  - GASTRIC HAEMORRHAGE [None]
